FAERS Safety Report 10256375 (Version 2)
Quarter: 2014Q3

REPORT INFORMATION
  Report Type: Spontaneous
  Country: BR (occurrence: BR)
  Receive Date: 20140624
  Receipt Date: 20140703
  Transmission Date: 20150326
  Serious: Yes (Other)
  Sender: FDA-Public Use
  Company Number: BR-PFIZER INC-2014168934

PATIENT
  Age: 82 Year
  Sex: Male
  Weight: 90 kg

DRUGS (8)
  1. OLMETEC [Suspect]
     Active Substance: OLMESARTAN MEDOXOMIL
     Indication: BLOOD PRESSURE
     Dosage: 20 MG IN AM, 10 MG PM
     Route: 048
     Dates: start: 2009
  2. ASPIRINA [Concomitant]
     Active Substance: ASPIRIN
     Indication: CARDIOVASCULAR DISORDER
     Dosage: 1 DF, DAILY
  3. CEBRALAT [Concomitant]
     Active Substance: CILOSTAZOL
     Indication: CARDIOVASCULAR DISORDER
     Dosage: 2 DF, DAILY
     Dates: start: 1994
  4. BRILINTA [Concomitant]
     Active Substance: TICAGRELOR
     Indication: CARDIOVASCULAR DISORDER
     Dosage: 1804 MG DAILY
  5. LIPITOR [Suspect]
     Active Substance: ATORVASTATIN CALCIUM
     Indication: BLOOD CHOLESTEROL
     Dosage: 1 TABLET OF 20 MG, DAILY
     Route: 048
  6. GLIFAGE [Concomitant]
     Active Substance: METFORMIN HYDROCHLORIDE
     Indication: BLOOD GLUCOSE
     Dosage: 3 DF, DAILY
     Dates: start: 1994
  7. GLIMEPIRIDA [Concomitant]
     Active Substance: GLIMEPIRIDE
     Indication: BLOOD GLUCOSE
     Dosage: 4 MG, 1X/DAY
     Dates: start: 1994
  8. JANUVIA [Concomitant]
     Active Substance: SITAGLIPTIN PHOSPHATE
     Indication: BLOOD GLUCOSE
     Dosage: 1 DF, DAILY
     Dates: start: 201403

REACTIONS (4)
  - Medication error [Not Recovered/Not Resolved]
  - Cerebrovascular accident [Unknown]
  - Cardiovascular disorder [Unknown]
  - Localised infection [Unknown]

NARRATIVE: CASE EVENT DATE: 2009
